FAERS Safety Report 10221717 (Version 1)
Quarter: 2014Q2

REPORT INFORMATION
  Report Type: Spontaneous
  Country: DE (occurrence: DE)
  Receive Date: 20140606
  Receipt Date: 20140606
  Transmission Date: 20141212
  Serious: Yes (Congenital Anomaly, Other)
  Sender: FDA-Public Use
  Company Number: DE-NOVEN-14DE009628

PATIENT
  Age: 1 Day
  Sex: Female
  Weight: 4.27 kg

DRUGS (3)
  1. PAROXETINE [Suspect]
     Indication: DEPRESSION
     Dosage: 20 MG, QD
     Route: 064
     Dates: start: 20130228
  2. PAROXETINE [Suspect]
     Dosage: 35 MG, QD
     Route: 064
  3. PAROXETINE [Suspect]
     Dosage: 40 MG, QD
     Route: 064
     Dates: end: 20131124

REACTIONS (5)
  - Large for dates baby [Recovering/Resolving]
  - Neonatal respiratory distress syndrome [Recovering/Resolving]
  - Atrial septal defect [Recovering/Resolving]
  - Drug withdrawal syndrome [Recovering/Resolving]
  - Foetal exposure during pregnancy [Recovered/Resolved]
